FAERS Safety Report 4637715-6 (Version None)
Quarter: 2005Q2

REPORT INFORMATION
  Report Type: 
  Country: None (occurrence: None)
  Receive Date: 20050418
  Receipt Date: 20050408
  Transmission Date: 20051028
  Serious: Yes (Hospitalization)
  Sender: FDA-Public Use
  Company Number: CH-AMGEN-UK125917

PATIENT
  Age: 69 Year
  Sex: Male
  Weight: 75 kg

DRUGS (12)
  1. MIMPARA [Suspect]
     Indication: HYPERPARATHYROIDISM SECONDARY
     Route: 065
     Dates: start: 20050204, end: 20050214
  2. MARCOUMAR [Suspect]
     Route: 048
     Dates: start: 19960101, end: 20050221
  3. GLUTRIL [Suspect]
     Route: 048
     Dates: end: 20050222
  4. RECORMON [Concomitant]
     Route: 051
  5. CORDARONE [Concomitant]
     Route: 048
     Dates: end: 20050225
  6. TOREM [Concomitant]
     Route: 048
  7. PHOSPHONORM [Concomitant]
     Route: 048
  8. CALCIUM GLUCONATE [Concomitant]
     Route: 048
  9. DAFALGAN [Concomitant]
     Route: 048
  10. VITAMINS [Concomitant]
     Route: 048
  11. ROCALTROL [Concomitant]
     Route: 048
  12. VENOFER [Concomitant]
     Route: 051

REACTIONS (7)
  - LEUKOCYTOCLASTIC VASCULITIS [None]
  - PAIN [None]
  - PETECHIAE [None]
  - PURPURA [None]
  - SKIN LESION [None]
  - SKIN NECROSIS [None]
  - STEVENS-JOHNSON SYNDROME [None]
